FAERS Safety Report 17013249 (Version 1)
Quarter: 2019Q4

REPORT INFORMATION
  Report Type: Report from Study
  Country: ZA (occurrence: ZA)
  Receive Date: 20191110
  Receipt Date: 20191110
  Transmission Date: 20200122
  Serious: Yes (Other)
  Sender: FDA-Public Use
  Company Number: NVSC2019ZA024110

PATIENT
  Age: 37 Year
  Sex: Male

DRUGS (1)
  1. TUVIGIN [Suspect]
     Active Substance: FINGOLIMOD HYDROCHLORIDE
     Indication: RELAPSING-REMITTING MULTIPLE SCLEROSIS
     Dosage: 0.5 MG
     Route: 048
     Dates: start: 20191030

REACTIONS (4)
  - Somnolence [Unknown]
  - Blood pressure decreased [Unknown]
  - Fatigue [Unknown]
  - Bradycardia [Unknown]

NARRATIVE: CASE EVENT DATE: 20191030
